FAERS Safety Report 9975930 (Version 5)
Quarter: 2014Q3

REPORT INFORMATION
  Report Type: Spontaneous
  Country: IT (occurrence: IT)
  Receive Date: 20140306
  Receipt Date: 20140908
  Transmission Date: 20150326
  Serious: Yes (Hospitalization)
  Sender: FDA-Public Use
  Company Number: IT-VERTEX PHARMACEUTICALS INC-2014-001102

PATIENT
  Age: 23 Year
  Sex: Male

DRUGS (9)
  1. DEPAKENE [Interacting]
     Active Substance: VALPROIC ACID
     Indication: PRODUCT USED FOR UNKNOWN INDICATION
     Dosage: 1 G, UNK
     Route: 048
     Dates: start: 20131001
  2. ZYPREXA [Interacting]
     Active Substance: OLANZAPINE
     Dosage: 500 MG, UNK
     Route: 048
  3. PEGASYS [Concomitant]
     Active Substance: PEGINTERFERON ALFA-2A
     Indication: CHRONIC HEPATITIS C
     Dosage: 180 ?G, QW
     Route: 058
     Dates: start: 20131206, end: 20140225
  4. ZYPREXA [Interacting]
     Active Substance: OLANZAPINE
     Indication: PRODUCT USED FOR UNKNOWN INDICATION
     Dosage: 5 MG, UNK
     Route: 048
     Dates: start: 20131001
  5. COPEGUS [Concomitant]
     Active Substance: RIBAVIRIN
     Indication: CHRONIC HEPATITIS C
     Dosage: 1000 MG, QD
     Route: 048
     Dates: start: 20131206, end: 20140225
  6. ZYPREXA [Interacting]
     Active Substance: OLANZAPINE
     Dosage: 500 MG, UNK
     Route: 048
  7. SUBOXONE [Concomitant]
     Active Substance: BUPRENORPHINE HYDROCHLORIDE\NALOXONE HYDROCHLORIDE
     Indication: PRODUCT USED FOR UNKNOWN INDICATION
     Dates: start: 2012
  8. INCIVO [Suspect]
     Active Substance: TELAPREVIR
     Indication: CHRONIC HEPATITIS C
     Dosage: 2250 MG, QD
     Route: 048
     Dates: start: 20140110, end: 20140225
  9. INCIVO [Suspect]
     Active Substance: TELAPREVIR
     Indication: HEPATITIS C

REACTIONS (2)
  - Drug interaction [Recovered/Resolved]
  - Oedematous pancreatitis [Recovered/Resolved]

NARRATIVE: CASE EVENT DATE: 20140224
